FAERS Safety Report 13701886 (Version 2)
Quarter: 2017Q4

REPORT INFORMATION
  Report Type: Spontaneous
  Country: FR (occurrence: FR)
  Receive Date: 20170629
  Receipt Date: 20171011
  Transmission Date: 20180320
  Serious: Yes (Other)
  Sender: FDA-Public Use
  Company Number: FR-BAYER-2017-123343

PATIENT
  Age: 43 Year
  Sex: Female

DRUGS (1)
  1. MIRENA [Suspect]
     Active Substance: LEVONORGESTREL
     Indication: CONTRACEPTION
     Dosage: 20 MCG/24HR, CONT
     Route: 015
     Dates: start: 20160701, end: 20170623

REACTIONS (10)
  - Menorrhagia [Recovered/Resolved]
  - Vaginal haemorrhage [Recovered/Resolved]
  - Migraine [Recovered/Resolved]
  - Weight increased [Recovered/Resolved]
  - Skin hyperpigmentation [Recovered/Resolved]
  - Polymenorrhoea [Recovered/Resolved]
  - Abdominal pain [Recovered/Resolved]
  - Hypertrichosis [Recovered/Resolved]
  - Breast pain [Not Recovered/Not Resolved]
  - Depression [Recovered/Resolved]
